APPROVED DRUG PRODUCT: MAVENCLAD
Active Ingredient: CLADRIBINE
Strength: 10MG
Dosage Form/Route: TABLET;ORAL
Application: N022561 | Product #001 | TE Code: AB
Applicant: EMD SERONO INC
Approved: Mar 29, 2019 | RLD: Yes | RS: Yes | Type: RX

PATENTS:
Patent 7713947 | Expires: Oct 16, 2026
Patent 12533408 | Expires: Sep 10, 2041
Patent 10849919 | Expires: Nov 23, 2038
Patent 12539329 | Expires: Sep 10, 2041
Patent 8377903 | Expires: May 31, 2026